FAERS Safety Report 18576089 (Version 2)
Quarter: 2020Q4

REPORT INFORMATION
  Report Type: Spontaneous
  Country: US (occurrence: US)
  Receive Date: 20201203
  Receipt Date: 20201226
  Transmission Date: 20210114
  Serious: Yes (Other)
  Sender: FDA-Public Use
  Company Number: US-009507513-2011USA014501

PATIENT
  Age: 58 Year
  Sex: Female
  Weight: 63.05 kg

DRUGS (10)
  1. KEPPRA [Suspect]
     Active Substance: LEVETIRACETAM
     Dosage: 1 TABLET IN THE MORNING
     Route: 048
     Dates: start: 2020
  2. ESCITALOPRAM [Suspect]
     Active Substance: ESCITALOPRAM OXALATE
     Indication: ANXIETY
     Dosage: 20 MILLIGRAM, QD IN MORNING
  3. KEPPRA [Suspect]
     Active Substance: LEVETIRACETAM
     Dosage: 1000 MG, BID, 1 TABLET IN THE MORNING AND 1.5 TABLETS IN THE EVENING
     Dates: end: 2020
  4. KEPPRA [Suspect]
     Active Substance: LEVETIRACETAM
     Dosage: 1.5 TABLETS IN THE EVENING
     Route: 048
     Dates: start: 2020
  5. LAMICTAL [Suspect]
     Active Substance: LAMOTRIGINE
     Dosage: 200 MILLIGRAM, BID
  6. CARVEDILOL. [Suspect]
     Active Substance: CARVEDILOL
     Dosage: UNK
  7. DIGOXIN. [Suspect]
     Active Substance: DIGOXIN
     Indication: CARDIAC DISORDER
     Dosage: 250 MICROGRAM
  8. ZOCOR [Suspect]
     Active Substance: SIMVASTATIN
     Dosage: UNK
     Route: 048
  9. RIMEGEPANT SULFATE [Suspect]
     Active Substance: RIMEGEPANT SULFATE
     Indication: MIGRAINE
     Dosage: 75 MILLIGRAM, ONCE
     Route: 048
     Dates: start: 20201029
  10. GLIMEPIRIDE. [Suspect]
     Active Substance: GLIMEPIRIDE
     Indication: DIABETES MELLITUS
     Dosage: UNK

REACTIONS (3)
  - Petit mal epilepsy [Recovered/Resolved]
  - Dry mouth [Not Recovered/Not Resolved]
  - Drug interaction [Unknown]

NARRATIVE: CASE EVENT DATE: 20201029
